FAERS Safety Report 10477662 (Version 1)
Quarter: 2014Q3

REPORT INFORMATION
  Report Type: Spontaneous
  Country: TR (occurrence: TR)
  Receive Date: 20140926
  Receipt Date: 20140926
  Transmission Date: 20150326
  Serious: Yes (Other)
  Sender: FDA-Public Use
  Company Number: TR-BEH-2014045157

PATIENT
  Age: 6 Year
  Sex: Female

DRUGS (2)
  1. INTRAVENOUS IMMUNOGLOBULINE [Suspect]
     Active Substance: HUMAN IMMUNOGLOBULIN G
     Indication: DRUG REACTION WITH EOSINOPHILIA AND SYSTEMIC SYMPTOMS
  2. INTRAVENOUS IMMUNOGLOBULINE [Suspect]
     Active Substance: HUMAN IMMUNOGLOBULIN G
     Indication: DRUG REACTION WITH EOSINOPHILIA AND SYSTEMIC SYMPTOMS

REACTIONS (2)
  - Off label use [None]
  - Oral disorder [Recovered/Resolved]
